FAERS Safety Report 8371681-5 (Version None)
Quarter: 2012Q2

REPORT INFORMATION
  Report Type: 
  Country: None (occurrence: None)
  Receive Date: 20120518
  Receipt Date: 20120515
  Transmission Date: 20120825
  Serious: No
  Sender: FDA-Public Use
  Company Number: US-PFIZER INC-2012097739

PATIENT
  Sex: Female
  Weight: 63.492 kg

DRUGS (3)
  1. OXYCODONE HCL AND ACETAMINOPHEN [Concomitant]
     Indication: PAIN
     Dosage: UNK
  2. CYMBALTA [Concomitant]
     Indication: PANIC ATTACK
     Dosage: UNK
  3. CHANTIX [Suspect]
     Indication: SMOKING CESSATION THERAPY
     Dosage: UNK
     Route: 048
     Dates: start: 20110501, end: 20110801

REACTIONS (1)
  - NAUSEA [None]
